FAERS Safety Report 9112576 (Version 1)
Quarter: 2013Q1

REPORT INFORMATION
  Report Type: Spontaneous
  Country: JP (occurrence: JP)
  Receive Date: 20130211
  Receipt Date: 20130211
  Transmission Date: 20140127
  Serious: Yes (Death, Other)
  Sender: FDA-Public Use
  Company Number: PHHY2012JP101113

PATIENT
  Sex: 0

DRUGS (4)
  1. HYDRALAZINE [Suspect]
     Route: 064
  2. METHYLDOPA [Concomitant]
     Route: 064
  3. EPLERENONE [Concomitant]
     Route: 064
  4. NIFEDIPINE [Concomitant]
     Route: 064

REACTIONS (3)
  - Foetal death [Fatal]
  - Foetal growth restriction [Unknown]
  - Foetal exposure during pregnancy [Unknown]
